FAERS Safety Report 4767468-2 (Version None)
Quarter: 2005Q3

REPORT INFORMATION
  Report Type: 
  Country: None (occurrence: None)
  Receive Date: 20050912
  Receipt Date: 20050825
  Transmission Date: 20060218
  Serious: Yes (Death)
  Sender: FDA-Public Use
  Company Number: 2005S1007448

PATIENT
  Age: 90 Year
  Sex: Male

DRUGS (11)
  1. CLOZAPINE [Suspect]
     Indication: DEMENTIA
     Dosage: 12.5 MG; QD; PO
     Route: 048
     Dates: start: 20040604, end: 20050801
  2. NITROGLYCERIN [Concomitant]
  3. LEVOFLOXACIN [Concomitant]
  4. SCOPOLAMINE [Concomitant]
  5. HYDROCHLORIDE PETHIDINE HYDROCHLORIDE [Concomitant]
  6. ATENOLOL [Concomitant]
  7. ESCITALOPRAM OXALATE [Concomitant]
  8. VITAMINS [Concomitant]
  9. LOVODOPA/CARBIDOPA [Concomitant]
  10. RIVASTIGMINE TARTRATE [Concomitant]
  11. PANTOPRAZOLE SODIUM [Concomitant]

REACTIONS (1)
  - DEATH [None]
